FAERS Safety Report 7638199-6 (Version None)
Quarter: 2011Q3

REPORT INFORMATION
  Report Type: 
  Country: None (occurrence: None)
  Receive Date: 20110722
  Receipt Date: 20110722
  Transmission Date: 20111222
  Serious: No
  Sender: FDA-Public Use
  Company Number: None

PATIENT
  Sex: Female
  Weight: 77.1115 kg

DRUGS (1)
  1. NISOLDIPINE [Suspect]
     Indication: HYPERTENSION
     Dosage: 8.5MG 1 A DAY MOUTH
     Route: 048
     Dates: start: 20110521

REACTIONS (4)
  - ASTHENIA [None]
  - DIZZINESS [None]
  - HYPERTENSION [None]
  - FATIGUE [None]
